FAERS Safety Report 8276527-1 (Version None)
Quarter: 2012Q2

REPORT INFORMATION
  Report Type: 
  Country: None (occurrence: None)
  Receive Date: 20120412
  Receipt Date: 20120210
  Transmission Date: 20120825
  Serious: No
  Sender: FDA-Public Use
  Company Number: US-GLAXOSMITHKLINE-A0965534A

PATIENT
  Age: 68 Year
  Sex: Male

DRUGS (11)
  1. ICAPS [Concomitant]
  2. FRUIT [Concomitant]
  3. ANDROGEL [Concomitant]
  4. BYETTA [Concomitant]
  5. VYTORIN [Concomitant]
  6. JALYN [Suspect]
     Indication: POLLAKIURIA
     Dosage: 1CAP PER DAY
     Route: 048
     Dates: start: 20100101, end: 20120120
  7. ATACAND [Concomitant]
  8. ASPIRIN [Concomitant]
  9. ANTIBIOTIC [Concomitant]
  10. METFORMIN HCL [Concomitant]
  11. VITAMIN D [Concomitant]

REACTIONS (3)
  - PROSTATITIS [None]
  - SEMEN VOLUME DECREASED [None]
  - PROSTATIC SPECIFIC ANTIGEN INCREASED [None]
